FAERS Safety Report 23542133 (Version 6)
Quarter: 2024Q3

REPORT INFORMATION
  Report Type: Report from Study
  Country: US (occurrence: US)
  Receive Date: 20240220
  Receipt Date: 20240918
  Transmission Date: 20241016
  Serious: Yes (Hospitalization, Other)
  Sender: AMGEN
  Company Number: US-AMGEN-USASL2024031967

PATIENT
  Age: 43 Year
  Sex: Female
  Weight: 66.1 kg

DRUGS (33)
  1. KANJINTI [Suspect]
     Active Substance: TRASTUZUMAB-ANNS
     Indication: Product used for unknown indication
     Dosage: 420 MILLIGRAM, Q3WK (150 MILLIGRAM SINGLE-DOSE VIAL)
     Route: 065
     Dates: start: 20220328, end: 20220513
  2. KANJINTI [Suspect]
     Active Substance: TRASTUZUMAB-ANNS
     Dosage: 420 MILLIGRAM, Q3WK
     Route: 065
     Dates: start: 20220628
  3. KANJINTI [Suspect]
     Active Substance: TRASTUZUMAB-ANNS
     Dosage: 150 MILLIGRAM
     Route: 065
  4. KANJINTI [Suspect]
     Active Substance: TRASTUZUMAB-ANNS
     Dosage: 397 MILLIGRAM,(6 MILLIGRAM /KILOGRAM), (INFUSE LOADING DOSE OVER 90 MINUTES)
     Route: 042
     Dates: start: 20240823
  5. DOCETAXEL [Concomitant]
     Active Substance: DOCETAXEL\DOCETAXEL ANHYDROUS
  6. TUKYSA [Concomitant]
     Active Substance: TUCATINIB
     Dosage: 300 MILLIGRAM, BID
     Route: 048
     Dates: start: 20220328
  7. XELODA [Concomitant]
     Active Substance: CAPECITABINE
     Dosage: 825 MILLIGRAM, BID
     Dates: start: 20220328, end: 202307
  8. XELODA [Concomitant]
     Active Substance: CAPECITABINE
     Dosage: 825 MILLIGRAM, BID
     Dates: start: 2023, end: 202310
  9. XELODA [Concomitant]
     Active Substance: CAPECITABINE
     Dosage: 625 MILLIGRAM, BID
  10. NOLVADEX [Concomitant]
     Active Substance: TAMOXIFEN CITRATE
     Dosage: 20 MILLIGRAM, QD
     Route: 048
  11. OXYCODONE [Concomitant]
     Active Substance: OXYCODONE
     Dosage: 30 MILLIGRAM (ABOUT 10 TABLET PER DAY)
  12. DIETARY SUPPLEMENT [Concomitant]
     Active Substance: DIETARY SUPPLEMENT
     Dosage: UNK UNK, BID
     Route: 048
  13. VOLTAREN [Concomitant]
     Active Substance: DICLOFENAC SODIUM
     Indication: Pain in extremity
     Dosage: 2 GRAM (1%), TID
  14. Vibra [Concomitant]
     Indication: Nail infection
     Dosage: 100 MILLIGRAM, BID (FOR 5 DAYS)
     Route: 048
  15. DURAGESIC [Concomitant]
     Active Substance: FENTANYL
     Dosage: APPLY ONE PATCH TO SKIN EVERY THIRD DAY
  16. ATROVENT [Concomitant]
     Active Substance: IPRATROPIUM BROMIDE
     Indication: Rhinorrhoea
     Dosage: 21 MICROGRAM (ONE SPRAY IN EACH NOSTRIL), BID
  17. ROBAXIN [Concomitant]
     Active Substance: METHOCARBAMOL
     Dosage: 500 MILLIGRAM, BID FOR 10 DAYS
     Route: 048
  18. BACTROBAN [Concomitant]
     Active Substance: MUPIROCIN CALCIUM
     Indication: Rhinalgia
     Dosage: 2% APPLY WITHIN EACH NOSTRIL, BID
  19. BACTROBAN [Concomitant]
     Active Substance: MUPIROCIN CALCIUM
     Indication: Nasal crusting
  20. NALOXONE [Concomitant]
     Active Substance: NALOXONE
     Dosage: SPRAY THE CONTENT OF DEVICE IN BOTH NOSTRIL ALTRENATIVELY
  21. MACROBID [Concomitant]
     Active Substance: NITROFURANTOIN\NITROFURANTOIN MONOHYDRATE
     Dosage: 100 MILLIGRAM, BID FOR 7 DAYS
  22. OCUFLOX [Concomitant]
     Active Substance: OFLOXACIN
     Dosage: 2 DROPS IN EACH EYE, QID
     Route: 047
  23. ZOFRAN [Concomitant]
     Active Substance: ONDANSETRON HYDROCHLORIDE
     Indication: Nausea
     Dosage: 8 MILLIGRAM, Q8H
     Route: 048
  24. ROXICODONE [Concomitant]
     Active Substance: OXYCODONE HYDROCHLORIDE
     Dosage: 10 MILLIGRAM, TID
  25. PERCOCET [Concomitant]
     Active Substance: ACETAMINOPHEN\OXYCODONE HYDROCHLORIDE
     Indication: Pain
     Dosage: 10-325 MILLIGRAM 1 TABLET, Q6H
     Route: 048
  26. VEETIDS [Concomitant]
     Active Substance: PENICILLIN V POTASSIUM
     Dosage: 500 MILLIGRAM, TID FOR 7 DAYS
     Route: 048
  27. POLYTRIM [Concomitant]
     Active Substance: POLYMYXIN B SULFATE\TRIMETHOPRIM SULFATE
     Dosage: ONE DROP IN LEFT EYE, Q6H
     Route: 047
  28. DELTASONE [Concomitant]
     Active Substance: PREDNISONE
     Dosage: 20 MILLIGRAM, BID
     Route: 048
  29. COMPAZINE [Concomitant]
     Active Substance: PROCHLORPERAZINE MALEATE
     Indication: Nausea
     Dosage: 10 MILLIGRAM, Q6H
  30. PROMETHAZINE DM [Concomitant]
     Active Substance: DEXTROMETHORPHAN HYDROBROMIDE\PROMETHAZINE HYDROCHLORIDE
     Indication: Cough
     Dosage: 5 MILLILITER, QID
     Route: 048
  31. Carmol [Concomitant]
     Dosage: APPLY ON AFFECTED AREA, BID
  32. SODIUM CHLORIDE [Concomitant]
     Active Substance: SODIUM CHLORIDE
     Dosage: NS BOLUS
     Route: 042
     Dates: start: 20231208, end: 20231208
  33. SODIUM CHLORIDE [Concomitant]
     Active Substance: SODIUM CHLORIDE
     Dosage: 250 MILLIGRAM, (0.9 PERCENT)

REACTIONS (13)
  - Palmar-plantar erythrodysaesthesia syndrome [Unknown]
  - Dizziness [Unknown]
  - Pain [Recovering/Resolving]
  - Pneumonia [Unknown]
  - Confusional state [Unknown]
  - Amnesia [Unknown]
  - Pharyngitis streptococcal [Unknown]
  - Skin hypertrophy [Not Recovered/Not Resolved]
  - Vomiting [Unknown]
  - Nausea [Not Recovered/Not Resolved]
  - Full blood count abnormal [Unknown]
  - Metabolic function test abnormal [Unknown]
  - Mean cell volume increased [Unknown]

NARRATIVE: CASE EVENT DATE: 20240614
